FAERS Safety Report 7346113 (Version 2)
Quarter: 2013Q4

REPORT INFORMATION
  Report Type: Spontaneous
  Country: US (occurrence: None)
  Receive Date: 20100319
  Receipt Date: 20131028
  Transmission Date: 20140711
  Serious: Yes (Hospitalization)
  Sender: FDA-Public Use
  Company Number: 2010S1001515

PATIENT
  Age: 59 Year
  Sex: Female
  Weight: 67.13 kg

DRUGS (6)
  1. GLYBURIDE (GLIBENCLAMIDE) (5 MILLIGRAM) [Concomitant]
  2. RANITIDINE (RANITIDINE HYDROCHLORIDE) (50 MILLIGRAM) [Concomitant]
  3. FLEET PHOSPHO-SODA ORAL SALINE LAXATIVE, GINGER-LEMON FLAVOR (ORAL SOLUTION) [Suspect]
     Indication: COLONOSCOPY
     Dosage: PO
     Route: 048
     Dates: start: 20080224, end: 20080225
  4. METFORMIN (METFORMIN HYDROCHLORIDE) (1000 MILLIGRAM) [Concomitant]
  5. LISINOPRIL (LISINOPRIL) (20 MILLIGRAM) [Concomitant]
  6. PRAVASTATIN (PRAVASTATIN) (10 MILLIGRAM) [Concomitant]

REACTIONS (6)
  - Abdominal pain [None]
  - Renal failure chronic [None]
  - Anaemia [None]
  - Post procedural complication [None]
  - Nephrogenic anaemia [None]
  - Dehydration [None]
